FAERS Safety Report 6019458-X (Version None)
Quarter: 2008Q4

REPORT INFORMATION
  Report Type: 
  Country: None (occurrence: None)
  Receive Date: 20081224
  Receipt Date: 20081216
  Transmission Date: 20090506
  Serious: Yes (Other)
  Sender: FDA-Public Use
  Company Number: US-ELI_LILLY_AND_COMPANY-US200812004265

PATIENT
  Sex: Male

DRUGS (7)
  1. CIALIS [Suspect]
     Indication: ERECTILE DYSFUNCTION
     Dosage: 20 MG, AS NEEDED
     Route: 065
  2. CIALIS [Suspect]
     Dosage: 2.5 MG, DAILY (1/D)
     Route: 065
     Dates: start: 20081206, end: 20081213
  3. ASPIRIN [Concomitant]
     Dosage: UNK, DAILY (1/D)
  4. VYTORIN [Concomitant]
     Dosage: UNK, DAILY (1/D)
     Route: 065
  5. HYDROCHLOROTHIAZIDE [Concomitant]
     Dosage: 25 MG, DAILY (1/D)
  6. ATENOLOL [Concomitant]
     Dosage: 25 MG, DAILY (1/D)
     Route: 065
  7. AMLODIPINE W/VALSARTAN [Concomitant]
     Dosage: UNK, DAILY (1/D)
     Route: 065

REACTIONS (3)
  - DRUG EFFECT DECREASED [None]
  - HEART RATE INCREASED [None]
  - HEART RATE IRREGULAR [None]
